FAERS Safety Report 6640528-7 (Version None)
Quarter: 2010Q1

REPORT INFORMATION
  Report Type: 
  Country: None (occurrence: None)
  Receive Date: 20100318
  Receipt Date: 20100310
  Transmission Date: 20100710
  Serious: Yes (Other)
  Sender: FDA-Public Use
  Company Number: JP-MERCK-1001USA01352

PATIENT
  Age: 81 Year
  Sex: Female
  Weight: 40 kg

DRUGS (14)
  1. FOSAMAX [Suspect]
     Indication: OSTEOPOROSIS
     Route: 048
     Dates: start: 20060310, end: 20100113
  2. D-ALPHA [Concomitant]
     Indication: OSTEOPOROSIS
     Route: 048
  3. CALCIUM LACTATE [Concomitant]
     Indication: OSTEOPOROSIS
     Route: 048
  4. NEUROTROPIN [Concomitant]
     Indication: NEURALGIA
     Route: 065
  5. FERO-GRADUMET [Concomitant]
     Route: 048
  6. GOSHA-JINKI-GAN [Concomitant]
     Route: 048
  7. ASPARA CA [Concomitant]
     Route: 048
  8. LANSOPRAZOLE [Concomitant]
     Route: 048
  9. DIGOXIN [Concomitant]
     Route: 048
  10. AM [Concomitant]
     Route: 048
  11. EXCELASE [Concomitant]
     Route: 048
  12. BEZAFIBRATE [Concomitant]
     Route: 048
  13. MASHININ-GAN [Concomitant]
     Route: 048
  14. SHAKUYAKU-KANZO-TO [Concomitant]
     Indication: MUSCLE SPASMS
     Route: 048

REACTIONS (1)
  - OSTEOMYELITIS [None]
